FAERS Safety Report 7753647-9 (Version None)
Quarter: 2011Q3

REPORT INFORMATION
  Report Type: 
  Country: None (occurrence: None)
  Receive Date: 20110915
  Receipt Date: 20110825
  Transmission Date: 20111222
  Serious: Yes (Other)
  Sender: FDA-Public Use
  Company Number: DE-VIIV HEALTHCARE LIMITED-D0072499A

PATIENT
  Age: 45 Year
  Sex: Male

DRUGS (1)
  1. ABACAVIR SULFATE AND LAMIVUDINE [Suspect]
     Route: 065
     Dates: start: 20110717

REACTIONS (2)
  - ANGINA PECTORIS [None]
  - CHEST PAIN [None]
